FAERS Safety Report 6471214-4 (Version None)
Quarter: 2009Q4

REPORT INFORMATION
  Report Type: 
  Country: None (occurrence: None)
  Receive Date: 20091201
  Receipt Date: 20091116
  Transmission Date: 20100525
  Serious: Yes (Other)
  Sender: FDA-Public Use
  Company Number: DSU-2009-02618

PATIENT
  Age: 54 Year
  Sex: Male
  Weight: 67.1324 kg

DRUGS (3)
  1. BENICAR [Suspect]
     Indication: HYPERTENSION
     Dosage: 5 MG (5 MG, QD), PER ORAL
     Route: 048
     Dates: start: 20090101
  2. PRANDIN [Suspect]
     Indication: DIABETES MELLITUS
     Dosage: (1/2 TAB QD), PER ORAL
     Route: 048
     Dates: start: 20090101
  3. LORTAB (PARACETAMOL, HYDROCODONE BITARTRATE) (PARACETAMOL, HYDROCODONE [Concomitant]

REACTIONS (7)
  - BLOOD GLUCOSE DECREASED [None]
  - BLOOD PRESSURE INCREASED [None]
  - EYE HAEMORRHAGE [None]
  - EYE PAIN [None]
  - HYPOTENSION [None]
  - PHOTOPHOBIA [None]
  - VISION BLURRED [None]
